FAERS Safety Report 15747301 (Version 3)
Quarter: 2019Q1

REPORT INFORMATION
  Report Type: Report from Study
  Country: US (occurrence: US)
  Receive Date: 20181220
  Receipt Date: 20190221
  Transmission Date: 20190417
  Serious: Yes (Hospitalization, Disabling)
  Sender: FDA-Public Use
  Company Number: US-EXELIXIS-XL18418017730

PATIENT
  Age: 63 Year
  Sex: Male
  Weight: 92.7 kg

DRUGS (27)
  1. XL184 [Suspect]
     Active Substance: CABOZANTINIB
     Dosage: 40 MG, QD
     Route: 048
     Dates: start: 20180612, end: 20180725
  2. LEVEMIR [Concomitant]
     Active Substance: INSULIN DETEMIR
  3. FLAGYL [Concomitant]
     Active Substance: METRONIDAZOLE\METRONIDAZOLE HYDROCHLORIDE
  4. XL184 [Suspect]
     Active Substance: CABOZANTINIB
     Dosage: 40 MG, QD
     Route: 048
     Dates: start: 20180925, end: 20181021
  5. XL184 [Suspect]
     Active Substance: CABOZANTINIB
     Dosage: 40 MG, QD
     Route: 048
     Dates: start: 20181026, end: 20181213
  6. JANUVIA [Concomitant]
     Active Substance: SITAGLIPTIN PHOSPHATE
  7. PROVENTIL [Concomitant]
     Active Substance: ALBUTEROL
  8. PREDNISONE. [Concomitant]
     Active Substance: PREDNISONE
  9. ZANTAC [Concomitant]
     Active Substance: RANITIDINE HYDROCHLORIDE
  10. XL184 [Suspect]
     Active Substance: CABOZANTINIB
     Indication: RENAL CELL CARCINOMA
     Dosage: 60 MG, QD
     Route: 048
     Dates: start: 20180202, end: 20180318
  11. HUMALOG [Concomitant]
     Active Substance: INSULIN LISPRO
  12. NORVASC [Concomitant]
     Active Substance: AMLODIPINE BESYLATE
  13. LOVENOX [Concomitant]
     Active Substance: ENOXAPARIN SODIUM
  14. NEURONTIN [Concomitant]
     Active Substance: GABAPENTIN
  15. FLONASE [Concomitant]
     Active Substance: FLUTICASONE PROPIONATE
  16. VANCOMYCIN [Concomitant]
     Active Substance: VANCOMYCIN
  17. ZOCOR [Concomitant]
     Active Substance: SIMVASTATIN
  18. CHOLECALCIFEROL [Concomitant]
     Active Substance: CHOLECALCIFEROL
  19. COZAAR [Concomitant]
     Active Substance: LOSARTAN POTASSIUM
  20. NEBUPENT [Concomitant]
     Active Substance: PENTAMIDINE ISETHIONATE
  21. HEPARIN SODIUM. [Concomitant]
     Active Substance: HEPARIN SODIUM
  22. XL184 [Suspect]
     Active Substance: CABOZANTINIB
     Dosage: 40 MG, QD
     Route: 048
     Dates: start: 20180321, end: 20180520
  23. ATEZOLIZUMAB. [Suspect]
     Active Substance: ATEZOLIZUMAB
     Indication: RENAL CELL CARCINOMA
     Dosage: 1200 MG, Q3WEEKS
     Route: 042
     Dates: start: 20180202, end: 20180703
  24. MAG-OX [Concomitant]
     Active Substance: MAGNESIUM OXIDE
  25. ZYRTEC [Concomitant]
     Active Substance: CETIRIZINE HYDROCHLORIDE
  26. SOLU-MEDROL [Concomitant]
     Active Substance: METHYLPREDNISOLONE SODIUM SUCCINATE
  27. PRILOSEC [Concomitant]
     Active Substance: OMEPRAZOLE MAGNESIUM

REACTIONS (2)
  - Cardiac failure [Not Recovered/Not Resolved]
  - Atrial fibrillation [Recovered/Resolved]

NARRATIVE: CASE EVENT DATE: 20181213
